FAERS Safety Report 4876613-X (Version None)
Quarter: 2006Q1

REPORT INFORMATION
  Report Type: 
  Country: None (occurrence: None)
  Receive Date: 20060110
  Receipt Date: 20050105
  Transmission Date: 20060701
  Serious: Yes (Other)
  Sender: FDA-Public Use
  Company Number: US-MERCK-0501USA00608

PATIENT
  Sex: Male
  Weight: 49 kg

DRUGS (2)
  1. VIOXX [Suspect]
     Indication: PAIN IN EXTREMITY
     Route: 048
     Dates: start: 20000701, end: 20000801
  2. VIOXX [Suspect]
     Route: 048
     Dates: start: 20000701, end: 20000801

REACTIONS (5)
  - CARPAL TUNNEL SYNDROME [None]
  - CEREBROVASCULAR ACCIDENT [None]
  - PAIN [None]
  - SKIN DISORDER [None]
  - SKIN LACERATION [None]
